FAERS Safety Report 13288703 (Version 2)
Quarter: 2017Q2

REPORT INFORMATION
  Report Type: Spontaneous
  Country: US (occurrence: US)
  Receive Date: 20170302
  Receipt Date: 20170418
  Transmission Date: 20170830
  Serious: Yes (Hospitalization)
  Sender: FDA-Public Use
  Company Number: US-PFIZER INC-2017088133

PATIENT
  Age: 87 Year
  Sex: Male
  Weight: 73.3 kg

DRUGS (13)
  1. BAYER ASPIRIN [Concomitant]
     Active Substance: ASPIRIN
     Dosage: 81 MG, 1X/DAY
     Dates: start: 2010
  2. PRISTIQ EXTENDED-RELEASE [Suspect]
     Active Substance: DESVENLAFAXINE SUCCINATE
     Indication: DEPRESSION
     Dosage: 50 MG, UNK (1-PM)
     Dates: start: 2006
  3. BAYER ASPIRIN [Concomitant]
     Active Substance: ASPIRIN
     Indication: ATRIAL FIBRILLATION
     Dosage: 81MG, TABLETS, ONCE IN THE MORNING
     Route: 048
  4. FUROSEMIDE. [Concomitant]
     Active Substance: FUROSEMIDE
     Indication: PERIPHERAL SWELLING
     Dosage: 20MG, TABLET, ONCE IN THE MORNING AS NEEDED
     Route: 048
  5. DULERA [Concomitant]
     Active Substance: FORMOTEROL FUMARATE DIHYDRATE\MOMETASONE FUROATE
     Indication: CHRONIC OBSTRUCTIVE PULMONARY DISEASE
  6. OMEPRAZOLE. [Concomitant]
     Active Substance: OMEPRAZOLE
     Indication: DYSPEPSIA
     Dosage: 40MG, CAPSULES, ONE IN THE MORNING AS NEEDED
     Route: 048
  7. DULERA [Concomitant]
     Active Substance: FORMOTEROL FUMARATE DIHYDRATE\MOMETASONE FUROATE
     Indication: COUGH
     Dosage: [MOMETASONE FUROATE 200MCG]/[FORMOTEROL FUMARATE 5MCG] INHALER, ONE PUFF, ONCE AS NEEDED
  8. DILTIAZEM. [Concomitant]
     Active Substance: DILTIAZEM
     Indication: BLOOD PRESSURE ABNORMAL
     Dosage: 60MG, TABLETS, ONE IN THE MORNING AND ONE AT NIGHT
     Route: 048
     Dates: start: 2014
  9. DILTIAZEM. [Concomitant]
     Active Substance: DILTIAZEM
     Dosage: 60 MG, 1X/DAY
     Route: 048
     Dates: start: 2014
  10. OMEPRAZOLE. [Concomitant]
     Active Substance: OMEPRAZOLE
     Dosage: 40 MG, 1X/DAY
  11. PRISTIQ EXTENDED-RELEASE [Suspect]
     Active Substance: DESVENLAFAXINE SUCCINATE
     Dosage: 50MG, TABLETS, ONCE IN THE MORNING
     Route: 048
     Dates: start: 2012
  12. SYMBICORT [Concomitant]
     Active Substance: BUDESONIDE\FORMOTEROL FUMARATE DIHYDRATE
     Indication: COUGH
     Dosage: [BUDESONIDE 160MCG]/[FORMOTEROL FUMARATE 4.5MCG]INHALER,ONE PUFF,ONCE IN THE MORNING ONCE BEFORE BED
  13. SYMBICORT [Concomitant]
     Active Substance: BUDESONIDE\FORMOTEROL FUMARATE DIHYDRATE
     Dosage: 160/45, 1X/DAY
     Dates: start: 2014

REACTIONS (3)
  - Dizziness [Recovered/Resolved]
  - Balance disorder [Not Recovered/Not Resolved]
  - Crying [Recovered/Resolved]

NARRATIVE: CASE EVENT DATE: 201702
